FAERS Safety Report 10685577 (Version 2)
Quarter: 2015Q1

REPORT INFORMATION
  Report Type: Spontaneous
  Country: US (occurrence: US)
  Receive Date: 20141231
  Receipt Date: 20150327
  Transmission Date: 20150720
  Serious: Yes (Hospitalization)
  Sender: FDA-Public Use
  Company Number: US-BAYER-2014-191299

PATIENT
  Age: 23 Year
  Sex: Female
  Weight: 63.49 kg

DRUGS (3)
  1. NORINYL [Concomitant]
     Active Substance: ETHINYL ESTRADIOL\MESTRANOL\NORETHINDRONE
  2. MIRENA [Suspect]
     Active Substance: LEVONORGESTREL
     Indication: CONTRACEPTION
     Dosage: 20 MCG/24HR, CONT
     Route: 015
     Dates: start: 200503, end: 20070306
  3. PLAN B [Concomitant]
     Active Substance: LEVONORGESTREL

REACTIONS (5)
  - Pain [None]
  - Uterine perforation [None]
  - Off label use [None]
  - Injury [None]
  - Device issue [None]

NARRATIVE: CASE EVENT DATE: 2005
